FAERS Safety Report 19087445 (Version 1)
Quarter: 2021Q2

REPORT INFORMATION
  Report Type: Spontaneous
  Country: US (occurrence: US)
  Receive Date: 20210402
  Receipt Date: 20210402
  Transmission Date: 20210717
  Serious: Yes (Other)
  Sender: FDA-Public Use
  Company Number: None

PATIENT
  Age: 59 Year
  Sex: Female
  Weight: 78.3 kg

DRUGS (3)
  1. DULCOLAX LAXATIVE [Suspect]
     Active Substance: BISACODYL
     Indication: CONSTIPATION
     Dosage: ?          QUANTITY:2 TABLET(S);?
     Route: 048
     Dates: start: 20210331, end: 20210331
  2. HIGH BLOOD PRESSURE [Concomitant]
  3. HEARTBURN MED [Concomitant]

REACTIONS (2)
  - Muscle spasms [None]
  - Abdominal pain upper [None]

NARRATIVE: CASE EVENT DATE: 20210331
